FAERS Safety Report 6547979-X (Version None)
Quarter: 2010Q1

REPORT INFORMATION
  Report Type: 
  Country: None (occurrence: None)
  Receive Date: 20100124
  Receipt Date: 20091212
  Transmission Date: 20100710
  Serious: Yes (Hospitalization)
  Sender: FDA-Public Use
  Company Number: US-ALEXION-A200901075

PATIENT
  Sex: Male

DRUGS (1)
  1. ECULIZUMAB [Suspect]
     Indication: HAEMOLYTIC URAEMIC SYNDROME

REACTIONS (2)
  - PNEUMONIA STREPTOCOCCAL [None]
  - STREPTOCOCCAL BACTERAEMIA [None]
